FAERS Safety Report 10064991 (Version 2)
Quarter: 2014Q2

REPORT INFORMATION
  Report Type: Spontaneous
  Country: CN (occurrence: CN)
  Receive Date: 20140408
  Receipt Date: 20140408
  Transmission Date: 20141212
  Serious: Yes (Other)
  Sender: FDA-Public Use
  Company Number: CN-PFIZER INC-2014094539

PATIENT
  Age: 75 Year
  Sex: Female

DRUGS (3)
  1. LIPITOR [Suspect]
     Dosage: 30 MG, 1X/DAY
     Route: 048
  2. PLENDIL [Concomitant]
     Dosage: UNK
  3. ASPIRIN [Concomitant]
     Dosage: UNK

REACTIONS (1)
  - Breast mass [Unknown]
